FAERS Safety Report 5458015-0 (Version None)
Quarter: 2007Q3

REPORT INFORMATION
  Report Type: 
  Country: None (occurrence: None)
  Receive Date: 20070917
  Receipt Date: 20070905
  Transmission Date: 20080115
  Serious: Yes (Hospitalization, Other)
  Sender: FDA-Public Use
  Company Number: CHNY2007BR03124

PATIENT
  Age: 70 Year
  Sex: Female
  Weight: 96 kg

DRUGS (5)
  1. TRIMEDAL (NCH)(VITAMIN C, TROXERUTIN, ACETAMINOPHEN (PARACETAMOL), PHE [Suspect]
     Indication: INFLUENZA
     Dosage: 1 DF, Q8H,; 1 DF, Q8H,
     Dates: start: 20070101
  2. TRIMEDAL TOSSE (NCH)(DEXTROMETHORPHAN HYDROBROMIDE) DISPERSIBLE TABLET [Suspect]
     Indication: COUGH
     Dosage: PRN,
  3. AMIDALIN (BENZOCAINE, TYROTHRICIN) [Concomitant]
  4. SALBUTAMOL (SALBUTAMOL) [Concomitant]
  5. DROPROPIZINE (DROPROPIZINE) [Concomitant]

REACTIONS (8)
  - AORTIC DILATATION [None]
  - CORONARY ARTERY DILATATION [None]
  - DRUG INEFFECTIVE [None]
  - HEART RATE INCREASED [None]
  - NEOPLASM [None]
  - PALPITATIONS [None]
  - SOMNOLENCE [None]
  - SPINAL DISORDER [None]
